FAERS Safety Report 7020112-6 (Version None)
Quarter: 2010Q3

REPORT INFORMATION
  Report Type: 
  Country: None (occurrence: None)
  Receive Date: 20100929
  Receipt Date: 20100920
  Transmission Date: 20110219
  Serious: Yes (Hospitalization)
  Sender: FDA-Public Use
  Company Number: FR-ASTRAZENECA-2010SE45054

PATIENT
  Age: 688 Month
  Sex: Male

DRUGS (4)
  1. NEXIUM [Suspect]
     Route: 048
     Dates: start: 20090828
  2. FRACTAL [Suspect]
     Route: 048
     Dates: end: 20090601
  3. TAHOR [Suspect]
     Route: 048
     Dates: start: 20090828, end: 20100401
  4. OGAST [Suspect]
     Route: 048
     Dates: start: 20090601, end: 20090810

REACTIONS (1)
  - EOSINOPHILIC FASCIITIS [None]
